FAERS Safety Report 5173642-6 (Version None)
Quarter: 2006Q4

REPORT INFORMATION
  Report Type: 
  Country: None (occurrence: None)
  Receive Date: 20061214
  Receipt Date: 20061204
  Transmission Date: 20070319
  Serious: Yes (Death, Hospitalization)
  Sender: FDA-Public Use
  Company Number: FR-BRISTOL-MYERS SQUIBB COMPANY-13604947

PATIENT
  Age: 72 Year
  Sex: Female

DRUGS (10)
  1. PRAVASTATIN [Suspect]
     Route: 048
     Dates: start: 20050201, end: 20061025
  2. IKOREL [Concomitant]
     Route: 048
     Dates: start: 20050101
  3. PLAVIX [Concomitant]
     Route: 048
     Dates: start: 20050101
  4. VASTAREL [Concomitant]
     Dosage: STARTED ON 35 MG PER DAY THEN.
     Route: 048
     Dates: start: 20050101
  5. PERINDOPRIL ERBUMINE [Concomitant]
     Route: 048
     Dates: start: 20050101
  6. LASIX [Concomitant]
     Dates: start: 20060827
  7. MODOPAR [Concomitant]
     Dates: start: 20060908, end: 20060928
  8. NEXIUM [Concomitant]
     Dates: start: 20060101
  9. SOLUPRED [Concomitant]
     Dates: start: 20060101
  10. PREVISCAN [Concomitant]
     Route: 048
     Dates: start: 20060101

REACTIONS (10)
  - ACUTE RESPIRATORY DISTRESS SYNDROME [None]
  - BRONCHIOLITIS [None]
  - CARDIAC FAILURE [None]
  - DYSPNOEA [None]
  - LUNG INFILTRATION [None]
  - POLYMYOSITIS [None]
  - PYREXIA [None]
  - RENAL DISORDER [None]
  - RENAL FAILURE [None]
  - RESPIRATORY FAILURE [None]
